FAERS Safety Report 16512976 (Version 2)
Quarter: 2019Q3

REPORT INFORMATION
  Report Type: Spontaneous
  Country: CA (occurrence: CA)
  Receive Date: 20190702
  Receipt Date: 20190703
  Transmission Date: 20191004
  Serious: Yes (Other)
  Sender: FDA-Public Use
  Company Number: CA-PFIZER INC-2019275072

PATIENT
  Age: 81 Year
  Sex: Male
  Weight: 108 kg

DRUGS (3)
  1. RUBIDIUM [Concomitant]
     Active Substance: RUBIDIUM CHLORIDE RB-82
     Dosage: UNK
  2. DIPYRIDAMOLE. [Concomitant]
     Active Substance: DIPYRIDAMOLE
     Dosage: UNK
  3. AMINOPHYLLINE. [Suspect]
     Active Substance: AMINOPHYLLINE
     Indication: SCAN MYOCARDIAL PERFUSION
     Dosage: 75 MG, SINGLE
     Route: 042

REACTIONS (6)
  - Lip swelling [Recovered/Resolved]
  - Dyspnoea [Recovered/Resolved]
  - Rash pruritic [Recovered/Resolved]
  - Urticaria [Recovered/Resolved]
  - Hypotension [Recovered/Resolved]
  - Malaise [Recovered/Resolved]
